FAERS Safety Report 13071183 (Version 1)
Quarter: 2016Q4

REPORT INFORMATION
  Report Type: Spontaneous
  Country: US (occurrence: US)
  Receive Date: 20161229
  Receipt Date: 20161229
  Transmission Date: 20170207
  Serious: No
  Sender: FDA-Public Use
  Company Number: US-009507513-1612USA006788

PATIENT
  Age: 32 Year
  Sex: Female

DRUGS (2)
  1. GANIRELIX ACETATE INJECTION [Suspect]
     Active Substance: GANIRELIX ACETATE
     Indication: IN VITRO FERTILISATION
     Dosage: 250/0.5 MICRO-G/ML, UNK
     Route: 058
  2. ESTRADIOL. [Concomitant]
     Active Substance: ESTRADIOL
     Route: 048

REACTIONS (2)
  - Adverse event [Not Recovered/Not Resolved]
  - Skin disorder [Not Recovered/Not Resolved]

NARRATIVE: CASE EVENT DATE: 20161211
